FAERS Safety Report 4357259-9 (Version None)
Quarter: 2004Q2

REPORT INFORMATION
  Report Type: 
  Country: None (occurrence: None)
  Receive Date: 20040507
  Receipt Date: 20040415
  Transmission Date: 20050107
  Serious: Yes (Other)
  Sender: FDA-Public Use
  Company Number: US_0404102429

PATIENT
  Age: 68 Year
  Sex: Female

DRUGS (1)
  1. EVISTA [Suspect]
     Dates: start: 20030401

REACTIONS (3)
  - LUMBAR VERTEBRAL FRACTURE [None]
  - SPINAL COMPRESSION FRACTURE [None]
  - THORACIC VERTEBRAL FRACTURE [None]
